FAERS Safety Report 9230753 (Version 1)
Quarter: 2013Q2

REPORT INFORMATION
  Report Type: Spontaneous
  Country: GB (occurrence: None)
  Receive Date: 20130411
  Receipt Date: 20130411
  Transmission Date: 20140414
  Serious: Yes (Other)
  Sender: FDA-Public Use
  Company Number: AUR-APL-2013-02829

PATIENT
  Age: 60 Year
  Sex: Female

DRUGS (1)
  1. RAMIPRIL (RAMIPRIL) [Suspect]
     Indication: HYPERTENSION
     Route: 048
     Dates: start: 20130206, end: 20130216

REACTIONS (10)
  - Constipation [None]
  - Dizziness [None]
  - Dry mouth [None]
  - Gingival swelling [None]
  - Eye allergy [None]
  - Foreign body sensation in eyes [None]
  - Ocular hyperaemia [None]
  - Eye inflammation [None]
  - Vision blurred [None]
  - Eye pruritus [None]
